FAERS Safety Report 20097614 (Version 1)
Quarter: 2021Q4

REPORT INFORMATION
  Report Type: Spontaneous
  Country: US (occurrence: None)
  Receive Date: 20211121
  Receipt Date: 20211121
  Transmission Date: 20220303
  Serious: Yes (Disabling, Other)
  Sender: FDA-Public Use
  Company Number: None

PATIENT
  Age: 34 Year
  Sex: Male
  Weight: 72 kg

DRUGS (1)
  1. CIPROFLOXACIN [Suspect]
     Active Substance: CIPROFLOXACIN
     Indication: Food poisoning

REACTIONS (11)
  - Abdominal distension [None]
  - Gastric disorder [None]
  - Hypoaesthesia [None]
  - Hypoaesthesia [None]
  - Paraesthesia [None]
  - Musculoskeletal pain [None]
  - Musculoskeletal stiffness [None]
  - Headache [None]
  - Insomnia [None]
  - Depression [None]
  - Pain in extremity [None]

NARRATIVE: CASE EVENT DATE: 20170630
